FAERS Safety Report 9131912 (Version 1)
Quarter: 2013Q1

REPORT INFORMATION
  Report Type: Spontaneous
  Country: US (occurrence: US)
  Receive Date: 20130301
  Receipt Date: 20130301
  Transmission Date: 20140127
  Serious: Yes (Other)
  Sender: FDA-Public Use
  Company Number: US-COVIDIEN/TYCO HEALTHCARE/MALLINCKRODT-T201300935

PATIENT
  Age: 59 Year
  Sex: Female

DRUGS (2)
  1. SODIUM IODIDE (I 131) [Suspect]
     Indication: THYROID CANCER
     Dosage: 200 MCI, SINGLE
     Route: 048
     Dates: start: 2003, end: 2003
  2. SODIUM IODIDE (I 131) [Suspect]
     Dosage: 125 MCI, SINGLE
     Route: 048
     Dates: start: 2004, end: 2004

REACTIONS (4)
  - Aptyalism [Not Recovered/Not Resolved]
  - Parotid gland enlargement [Recovered/Resolved]
  - Dry mouth [Unknown]
  - Ageusia [Unknown]
